FAERS Safety Report 18059254 (Version 1)
Quarter: 2020Q3

REPORT INFORMATION
  Report Type: Spontaneous
  Country: US (occurrence: US)
  Receive Date: 20200722
  Receipt Date: 20200722
  Transmission Date: 20201103
  Serious: Yes (Death)
  Sender: FDA-Public Use
  Company Number: None

PATIENT
  Age: 85 Year
  Sex: Male
  Weight: 171 kg

DRUGS (2)
  1. AMOXICILLIN (AMOXICILLIN 250MG CAP) [Suspect]
     Active Substance: AMOXICILLIN
     Indication: SURGERY
     Route: 048
     Dates: start: 20200526, end: 20200610
  2. AMOXICILLIN (AMOXICILLIN 250MG CAP) [Suspect]
     Active Substance: AMOXICILLIN
     Indication: ENTEROCOCCUS TEST POSITIVE
     Route: 048
     Dates: start: 20200526, end: 20200610

REACTIONS (5)
  - Hepatic enzyme increased [None]
  - Jaundice [None]
  - International normalised ratio abnormal [None]
  - Hepatotoxicity [None]
  - Drug-induced liver injury [None]

NARRATIVE: CASE EVENT DATE: 20200625
